FAERS Safety Report 8792440 (Version 3)
Quarter: 2013Q1

REPORT INFORMATION
  Report Type: Report from Study
  Country: US (occurrence: US)
  Receive Date: 20120918
  Receipt Date: 20130122
  Transmission Date: 20140127
  Serious: No
  Sender: FDA-Public Use
  Company Number: US-VERTEX PHARMACEUTICAL INC.-AE-2012-011219

PATIENT
  Age: 56 Year
  Sex: Female
  Weight: 56 kg

DRUGS (4)
  1. VX-950 (TELAPREVIR) [Suspect]
     Indication: HEPATITIS C
     Dosage: 1125 MG, BID
     Route: 048
     Dates: start: 20120716
  2. PEGASYS [Suspect]
     Indication: HEPATITIS C
     Dosage: 180 ?G, QW
     Route: 058
     Dates: start: 20120716
  3. RIBASPHERE [Suspect]
     Indication: HEPATITIS C
     Dosage: 400 MG, BID
     Route: 048
     Dates: start: 20120716
  4. PROCRIT                            /00928302/ [Concomitant]
     Dosage: 40000 UT, QW
     Route: 058
     Dates: start: 20130102

REACTIONS (20)
  - Drug dose omission [Recovered/Resolved]
  - Depression [Unknown]
  - Chest discomfort [Unknown]
  - Headache [Unknown]
  - Blood count abnormal [Not Recovered/Not Resolved]
  - Influenza like illness [Unknown]
  - Anxiety [Not Recovered/Not Resolved]
  - Crying [Unknown]
  - Insomnia [Not Recovered/Not Resolved]
  - Abdominal pain upper [Unknown]
  - Pharyngeal erythema [Unknown]
  - Rhinorrhoea [Not Recovered/Not Resolved]
  - Peripheral coldness [Not Recovered/Not Resolved]
  - Decreased appetite [Not Recovered/Not Resolved]
  - Weight decreased [Unknown]
  - Fatigue [Not Recovered/Not Resolved]
  - Anorectal discomfort [Unknown]
  - Anal pruritus [Unknown]
  - Dysgeusia [Unknown]
  - Nausea [Not Recovered/Not Resolved]
